FAERS Safety Report 13493763 (Version 2)
Quarter: 2017Q2

REPORT INFORMATION
  Report Type: Spontaneous
  Country: JP (occurrence: JP)
  Receive Date: 20170427
  Receipt Date: 20170504
  Transmission Date: 20170830
  Serious: Yes (Hospitalization, Other)
  Sender: FDA-Public Use
  Company Number: JP-LUNDBECK-DKLU2029978

PATIENT
  Age: 65 Year
  Sex: Female

DRUGS (4)
  1. DOPS [Suspect]
     Active Substance: DROXIDOPA
     Indication: PARKINSONISM
     Route: 048
  2. LEVODOPA [Concomitant]
     Active Substance: LEVODOPA
     Indication: PARKINSONISM
     Route: 065
  3. AMANTADINE HYDROCHLORIDE. [Concomitant]
     Active Substance: AMANTADINE HYDROCHLORIDE
     Indication: PARKINSONISM
     Route: 048
  4. PRAMIPEXOLE HYDROCHLORIDE HYDRATE [Concomitant]
     Active Substance: PRAMIPEXOLE DIHYDROCHLORIDE
     Indication: PARKINSONISM
     Route: 048

REACTIONS (9)
  - Pyelonephritis [Unknown]
  - Parkinsonism [Unknown]
  - Acute kidney injury [Unknown]
  - Sepsis [Unknown]
  - Eating disorder [Unknown]
  - Hyperkalaemia [Recovering/Resolving]
  - Tremor [Unknown]
  - White blood cells urine positive [Recovering/Resolving]
  - Pyrexia [Unknown]
